FAERS Safety Report 4655240-3 (Version None)
Quarter: 2005Q2

REPORT INFORMATION
  Report Type: 
  Country: None (occurrence: None)
  Receive Date: 20050506
  Receipt Date: 20050430
  Transmission Date: 20051028
  Serious: Yes (Other)
  Sender: FDA-Public Use
  Company Number: GB-GLAXOSMITHKLINE-B0379751A

PATIENT
  Age: 40 Year
  Sex: Female
  Weight: 67 kg

DRUGS (8)
  1. ZYBAN [Suspect]
     Dosage: 150MG TWICE PER DAY
     Route: 065
     Dates: start: 20050329, end: 20050414
  2. NICOTINE [Concomitant]
     Dosage: 15MG PER DAY
     Route: 062
  3. ZOPICLONE [Concomitant]
     Route: 065
  4. ASPIRIN [Concomitant]
     Dosage: 75MG PER DAY
     Route: 065
  5. ATENOLOL [Concomitant]
     Dosage: 25MG PER DAY
     Route: 065
  6. NITROGLYCERIN [Concomitant]
  7. CLARITHROMYCIN [Concomitant]
     Dosage: 500MG PER DAY
     Route: 065
  8. ERYTHROMYCIN [Concomitant]
     Route: 065

REACTIONS (4)
  - CONFUSIONAL STATE [None]
  - DYSARTHRIA [None]
  - HEADACHE [None]
  - SOMNOLENCE [None]
